FAERS Safety Report 24678664 (Version 2)
Quarter: 2025Q1

REPORT INFORMATION
  Report Type: Spontaneous
  Country: US (occurrence: US)
  Receive Date: 20241129
  Receipt Date: 20250103
  Transmission Date: 20250409
  Serious: No
  Sender: ABBVIE
  Company Number: US-ABBVIE-6016768

PATIENT
  Age: 65 Year
  Sex: Female

DRUGS (2)
  1. SKYRIZI [Suspect]
     Active Substance: RISANKIZUMAB-RZAA
     Indication: Product used for unknown indication
     Route: 058
     Dates: start: 20241202
  2. SKYRIZI [Suspect]
     Active Substance: RISANKIZUMAB-RZAA
     Route: 058

REACTIONS (13)
  - Product dispensing error [Unknown]
  - Back pain [Unknown]
  - Depression [Unknown]
  - Arthralgia [Unknown]
  - Headache [Unknown]
  - Solar dermatitis [Unknown]
  - Mood altered [Unknown]
  - Insomnia [Unknown]
  - Muscle spasms [Unknown]
  - Balance disorder [Unknown]
  - Gait disturbance [Unknown]
  - Toothache [Unknown]
  - Irritability [Unknown]

NARRATIVE: CASE EVENT DATE: 20241201
